FAERS Safety Report 8511342-2 (Version None)
Quarter: 2012Q3

REPORT INFORMATION
  Report Type: 
  Country: None (occurrence: None)
  Receive Date: 20120716
  Receipt Date: 20120709
  Transmission Date: 20120928
  Serious: Yes (Other)
  Sender: FDA-Public Use
  Company Number: JP-ASTELLAS-2012JP006331

PATIENT
  Age: 30 Year
  Sex: Male

DRUGS (4)
  1. PROGRAF [Suspect]
     Route: 065
  2. PROGRAF [Suspect]
     Indication: CHRONIC GRAFT VERSUS HOST DISEASE
     Dosage: UNK
     Route: 065
     Dates: end: 20090301
  3. PREDNISOLONE [Concomitant]
     Indication: CHRONIC GRAFT VERSUS HOST DISEASE
     Dosage: UNK
     Route: 065
     Dates: end: 20090301
  4. CYCLOSPORINE [Concomitant]
     Indication: CHRONIC GRAFT VERSUS HOST DISEASE
     Dosage: UNK
     Route: 065
     Dates: end: 20090301

REACTIONS (2)
  - GRAFT VERSUS HOST DISEASE [None]
  - DRUG INEFFECTIVE [None]
